FAERS Safety Report 8934594 (Version 2)
Quarter: 2013Q3

REPORT INFORMATION
  Report Type: Spontaneous
  Country: FI (occurrence: FI)
  Receive Date: 20121129
  Receipt Date: 20130919
  Transmission Date: 20140515
  Serious: Yes (Death, Hospitalization)
  Sender: FDA-Public Use
  Company Number: FI-ROCHE-1157046

PATIENT
  Sex: Male

DRUGS (8)
  1. MABTHERA [Suspect]
     Indication: POLYARTHRITIS
     Dosage: 1000 MG ON 16/NOV/2011 AND 1000 MG ON 30/NOV/2011.
     Route: 065
     Dates: start: 20111116, end: 201210
  2. MABTHERA [Suspect]
     Indication: RHEUMATOID FACTOR POSITIVE
  3. MABTHERA [Suspect]
     Indication: ANTI-CYCLIC CITRULLINATED PEPTIDE ANTIBODY POSITIVE
  4. ARAVA [Concomitant]
     Indication: PRODUCT USED FOR UNKNOWN INDICATION
     Route: 065
     Dates: start: 201012
  5. ARAVA [Concomitant]
     Route: 065
  6. PREDNISOLON [Concomitant]
     Indication: PRODUCT USED FOR UNKNOWN INDICATION
  7. OXIKLORIN [Concomitant]
     Indication: PRODUCT USED FOR UNKNOWN INDICATION
  8. SALAZOPYRIN [Concomitant]
     Indication: PRODUCT USED FOR UNKNOWN INDICATION

REACTIONS (3)
  - Metastases to lung [Fatal]
  - Nausea [Fatal]
  - Condition aggravated [Fatal]
